FAERS Safety Report 12280044 (Version 1)
Quarter: 2016Q2

REPORT INFORMATION
  Report Type: Spontaneous
  Country: US (occurrence: US)
  Receive Date: 20160418
  Receipt Date: 20160418
  Transmission Date: 20160815
  Serious: No
  Sender: FDA-Public Use
  Company Number: US-BIOGEN-2016BI00221435

PATIENT

DRUGS (1)
  1. TECFIDERA [Suspect]
     Active Substance: DIMETHYL FUMARATE
     Indication: PRODUCT USED FOR UNKNOWN INDICATION

REACTIONS (8)
  - Hemianaesthesia [Recovered/Resolved]
  - Dizziness [Unknown]
  - Flushing [Unknown]
  - Migraine [Unknown]
  - Middle insomnia [Unknown]
  - Multiple sclerosis relapse [Unknown]
  - Abdominal pain upper [Unknown]
  - Nausea [Unknown]
